FAERS Safety Report 12116513 (Version 1)
Quarter: 2016Q1

REPORT INFORMATION
  Report Type: Not Available
  Country: FR (occurrence: FR)
  Receive Date: 20160225
  Receipt Date: 20160225
  Transmission Date: 20160526
  Serious: Yes (Other)
  Sender: FDA-Public Use
  Company Number: FR-ANIPHARMA-2016-FR-000005

PATIENT
  Age: 60 Year
  Sex: Male

DRUGS (3)
  1. LANSOPRAZOLE (NON-SPECIFIC) [Suspect]
     Active Substance: LANSOPRAZOLE
  2. RANITIDINE [Suspect]
     Active Substance: RANITIDINE\RANITIDINE HYDROCHLORIDE
  3. EZETIMIBE. [Suspect]
     Active Substance: EZETIMIBE

REACTIONS (2)
  - Cutaneous lupus erythematosus [Unknown]
  - Skin erosion [Unknown]
